FAERS Safety Report 9396442 (Version 1)
Quarter: 2013Q3

REPORT INFORMATION
  Report Type: Spontaneous
  Country: US (occurrence: None)
  Receive Date: 20130708
  Receipt Date: 20130708
  Transmission Date: 20140515
  Serious: Yes (Other)
  Sender: FDA-Public Use
  Company Number: SYM-2013-05268

PATIENT
  Age: 61 Year
  Sex: Female

DRUGS (1)
  1. XENAZINE [Suspect]
     Route: 048
     Dates: start: 20130621, end: 20130622

REACTIONS (1)
  - Vision blurred [None]
